FAERS Safety Report 8993423 (Version 1)
Quarter: 2013Q1

REPORT INFORMATION
  Report Type: Spontaneous
  Country: IT (occurrence: IT)
  Receive Date: 20130102
  Receipt Date: 20130102
  Transmission Date: 20140127
  Serious: Yes (Other)
  Sender: FDA-Public Use
  Company Number: PHHY2012IT120597

PATIENT
  Age: 40 Year
  Sex: Female

DRUGS (16)
  1. CICLOSPORIN [Suspect]
     Indication: RENAL TRANSPLANT
  2. PREDNISOLONE [Suspect]
     Indication: RENAL TRANSPLANT
  3. MYCOPHENOLATE MOFETIL [Suspect]
     Indication: RENAL TRANSPLANT
     Dosage: 360 MG, BID
  4. AZATHIOPRINE [Suspect]
     Indication: RENAL TRANSPLANT
  5. TACROLIMUS [Suspect]
     Indication: RENAL TRANSPLANT
  6. CYCLOPHOSPHAMIDE [Suspect]
     Indication: RENAL TRANSPLANT
  7. SIROLIMUS [Suspect]
     Indication: RENAL TRANSPLANT
  8. ADEFOVIR [Concomitant]
  9. LAMIVUDINE [Concomitant]
  10. LISINOPRIL [Concomitant]
  11. LOSARTAN [Concomitant]
  12. SIMVASTATIN [Concomitant]
  13. EZETIMIBE [Concomitant]
  14. RITUXIMAB [Concomitant]
  15. BASILIXIMAB [Concomitant]
  16. ASPIRIN [Concomitant]

REACTIONS (2)
  - Focal segmental glomerulosclerosis [Unknown]
  - Proteinuria [Unknown]
